FAERS Safety Report 6315862-0 (Version None)
Quarter: 2009Q3

REPORT INFORMATION
  Report Type: 
  Country: None (occurrence: None)
  Receive Date: 20090820
  Receipt Date: 20071116
  Transmission Date: 20100115
  Serious: Yes (Hospitalization, Other)
  Sender: FDA-Public Use
  Company Number: US-ASTRAZENECA-2006UW10754

PATIENT
  Age: 18716 Day
  Sex: Male
  Weight: 82.1 kg

DRUGS (42)
  1. SEROQUEL [Suspect]
     Indication: SLEEP DISORDER
     Route: 048
     Dates: start: 20050424, end: 20050429
  2. SEROQUEL [Suspect]
     Indication: MENTAL DISORDER
     Route: 048
     Dates: start: 20050424, end: 20050429
  3. SEROQUEL [Suspect]
     Indication: INSOMNIA
     Route: 048
     Dates: start: 20050424, end: 20050429
  4. SEROQUEL [Suspect]
     Dosage: STRENGTH- 25 MG, 50 MG, 60 MG, 100 MG, 200 MG.  DOSE- 25 MG - 200 MG
     Route: 048
     Dates: start: 20050425
  5. SEROQUEL [Suspect]
     Dosage: STRENGTH- 25 MG, 50 MG, 60 MG, 100 MG, 200 MG.  DOSE- 25 MG - 200 MG
     Route: 048
     Dates: start: 20050425
  6. SEROQUEL [Suspect]
     Dosage: STRENGTH- 25 MG, 50 MG, 60 MG, 100 MG, 200 MG.  DOSE- 25 MG - 200 MG
     Route: 048
     Dates: start: 20050425
  7. SEROQUEL [Suspect]
     Route: 048
     Dates: start: 20050501
  8. SEROQUEL [Suspect]
     Route: 048
     Dates: start: 20050501
  9. SEROQUEL [Suspect]
     Route: 048
     Dates: start: 20050501
  10. SEROQUEL [Suspect]
     Route: 048
     Dates: start: 20050707, end: 20051026
  11. SEROQUEL [Suspect]
     Route: 048
     Dates: start: 20050707, end: 20051026
  12. SEROQUEL [Suspect]
     Route: 048
     Dates: start: 20050707, end: 20051026
  13. SEROQUEL [Suspect]
     Route: 048
     Dates: end: 20060101
  14. SEROQUEL [Suspect]
     Route: 048
     Dates: end: 20060101
  15. SEROQUEL [Suspect]
     Route: 048
     Dates: end: 20060101
  16. LAMOTRIGINE [Concomitant]
     Route: 048
  17. ACETAMINOPHEN [Concomitant]
  18. BENZTROPINE MESYLATE [Concomitant]
     Dosage: PRN
  19. HALDOL [Concomitant]
     Dosage: PRN
     Route: 030
  20. HALDOL [Concomitant]
     Dosage: PRN
     Route: 048
  21. LORAZEPAM [Concomitant]
     Dosage: PRN
     Route: 030
  22. LORAZEPAM [Concomitant]
     Dosage: PRN
     Route: 048
  23. GLIPIZIDE [Concomitant]
     Indication: DIABETES MELLITUS
     Route: 048
  24. METFORMIN [Concomitant]
     Indication: DIABETES MELLITUS
     Route: 048
  25. NAPROXEN [Concomitant]
     Dosage: PRN
  26. MAALOX SUSPENSION WITH W/SIMETH [Concomitant]
     Indication: ABDOMINAL DISCOMFORT
     Route: 048
     Dates: start: 20050509
  27. GEODON [Concomitant]
     Indication: AGITATION
     Route: 030
     Dates: start: 20050509
  28. GEODON [Concomitant]
     Indication: AGGRESSION
     Route: 030
     Dates: start: 20050509
  29. ZYPREXA [Concomitant]
     Indication: AGITATION
     Route: 030
     Dates: start: 20050522
  30. ZYPREXA [Concomitant]
     Indication: PSYCHOTIC DISORDER
     Route: 030
     Dates: start: 20050522
  31. ZYPREXA [Concomitant]
     Indication: PARANOIA
     Route: 030
     Dates: start: 20050522
  32. ZYPREXA [Concomitant]
     Route: 030
     Dates: start: 20050522
  33. CLONIDINE [Concomitant]
     Indication: BLOOD PRESSURE
     Dosage: 0.3 MG - 0.6 MG DAILY
     Route: 048
     Dates: start: 20050509
  34. HYDROXYZINE PAM [Concomitant]
     Indication: ANXIETY
     Dosage: 25-50 MG ORAL OR INTRAMUSCULAR EVERY 4-6 HOURS AS NEEDED
     Dates: start: 20050509
  35. IBUPROFEN [Concomitant]
     Indication: PAIN
     Dosage: 200-400 MG EVERY 4 TO 6 HOURS AS NEEDED
     Route: 048
     Dates: start: 20050509
  36. IBUPROFEN [Concomitant]
     Indication: PYREXIA
     Dosage: 200-400 MG EVERY 4 TO 6 HOURS AS NEEDED
     Route: 048
     Dates: start: 20050509
  37. MILK OF MAGNESIA TAB [Concomitant]
     Indication: CONSTIPATION
     Dosage: 30 ML AS NEEDED
     Route: 048
     Dates: start: 20050509
  38. ROBAXIN [Concomitant]
     Route: 048
     Dates: start: 20050428
  39. AVANDIA [Concomitant]
     Route: 048
     Dates: start: 20050428
  40. ZOLOFT [Concomitant]
     Dates: start: 20050425
  41. PAXIL [Concomitant]
     Dates: start: 20050510
  42. LAMICTAL [Concomitant]
     Indication: AFFECTIVE DISORDER
     Dosage: 25-50 MG DAILY
     Route: 048
     Dates: start: 20050706

REACTIONS (7)
  - ANGER [None]
  - ANXIETY [None]
  - DIABETES MELLITUS [None]
  - DIABETES MELLITUS INADEQUATE CONTROL [None]
  - SUICIDAL IDEATION [None]
  - TACHYPHRENIA [None]
  - THINKING ABNORMAL [None]
